FAERS Safety Report 7020969-9 (Version None)
Quarter: 2010Q3

REPORT INFORMATION
  Report Type: 
  Country: None (occurrence: None)
  Receive Date: 20100924
  Receipt Date: 20100915
  Transmission Date: 20110219
  Serious: Yes (Other)
  Sender: FDA-Public Use
  Company Number: 2010SP049603

PATIENT
  Age: 29 Year
  Sex: Female
  Weight: 65 kg

DRUGS (3)
  1. CERAZETTE (DESOGESTREL /00754001/) [Suspect]
     Indication: CONTRACEPTION
     Dosage: PO
     Route: 048
     Dates: start: 20090101
  2. CERAZETTE (DESOGESTREL /00754001/) [Suspect]
     Indication: MENSTRUAL CYCLE MANAGEMENT
     Dosage: PO
     Route: 048
     Dates: start: 20090101
  3. LEVOFLOXACIN [Suspect]
     Indication: PNEUMONIA

REACTIONS (3)
  - DRUG INTERACTION [None]
  - OFF LABEL USE [None]
  - PNEUMONIA [None]
